FAERS Safety Report 10959332 (Version 1)
Quarter: 2015Q1

REPORT INFORMATION
  Report Type: Report from Study
  Country: CO (occurrence: CO)
  Receive Date: 20150327
  Receipt Date: 20150327
  Transmission Date: 20150721
  Serious: Yes (Death, Hospitalization)
  Sender: FDA-Public Use
  Company Number: CO-ROCHE-1555745

PATIENT
  Age: 70 Year
  Sex: Female

DRUGS (1)
  1. MYCOPHENOLATE MOFETIL. [Suspect]
     Active Substance: MYCOPHENOLATE MOFETIL
     Indication: LIVER TRANSPLANT
     Route: 048
     Dates: start: 20131031

REACTIONS (3)
  - Cardiac failure [Fatal]
  - Cardiac arrest [Fatal]
  - Cardiac failure [Fatal]

NARRATIVE: CASE EVENT DATE: 201412
